FAERS Safety Report 22084761 (Version 2)
Quarter: 2023Q2

REPORT INFORMATION
  Report Type: Report from Study
  Country: US (occurrence: US)
  Receive Date: 20230310
  Receipt Date: 20230405
  Transmission Date: 20230721
  Serious: Yes (Hospitalization)
  Sender: FDA-Public Use
  Company Number: US-BIOVITRUM-2023-US-006357

PATIENT
  Age: 13 Year
  Sex: Female

DRUGS (2)
  1. KINERET [Suspect]
     Active Substance: ANAKINRA
     Indication: Still^s disease
     Dosage: ONCE DAILY
     Route: 058
     Dates: start: 201905
  2. KINERET [Suspect]
     Active Substance: ANAKINRA
     Dosage: ONCE DAILY
     Route: 058
     Dates: start: 20210511

REACTIONS (9)
  - Oropharyngeal pain [Unknown]
  - Fall [Unknown]
  - Fatigue [Unknown]
  - Dizziness [Unknown]
  - Nausea [Unknown]
  - Injection site hypertrophy [Unknown]
  - Injection site pain [Unknown]
  - Intentional product misuse [Unknown]
  - Laboratory test abnormal [Unknown]

NARRATIVE: CASE EVENT DATE: 20190501
